FAERS Safety Report 8410263-3 (Version None)
Quarter: 2012Q2

REPORT INFORMATION
  Report Type: 
  Country: None (occurrence: None)
  Receive Date: 20120605
  Receipt Date: 20120604
  Transmission Date: 20120825
  Serious: Yes (Death, Hospitalization, Other)
  Sender: FDA-Public Use
  Company Number: PHHY2011NL47953

PATIENT
  Sex: Male

DRUGS (12)
  1. ZOMETA [Suspect]
     Dosage: 4 MG/100 ML IV IN 20 MINUTES 1X PER 28 DAYS
     Route: 042
     Dates: start: 20120411
  2. ZOLADEX [Concomitant]
  3. ZOMETA [Suspect]
     Indication: PROSTATE CANCER METASTATIC
     Dosage: 4 MG/100 ML IV IN 20 MINUTES 1X PER 28 DAYS
     Route: 042
     Dates: start: 20110505
  4. ZOMETA [Suspect]
     Dosage: 4 MG/100 ML IV IN 20 MINUTES 1X PER 28 DAYS
     Route: 042
     Dates: start: 20110531
  5. ZOMETA [Suspect]
     Dosage: 4 MG/100 ML IV IN 20 MINUTES 1X PER 28 DAYS
     Route: 042
     Dates: start: 20120507
  6. OXYNORM [Concomitant]
  7. LYRICA [Concomitant]
  8. IRBESARTAN + HYDROCHLOROTHIAZIDE [Concomitant]
  9. ZOMETA [Suspect]
     Dosage: 4 MG/100 ML IV IN 20 MINUTES 1X PER 28 DAYS
     Route: 042
     Dates: start: 20120117
  10. ZOMETA [Suspect]
     Dosage: 4 MG/100 ML IV IN 20 MINUTES 1X PER 28 DAYS
     Route: 042
     Dates: start: 20111219
  11. OXYCONTIN [Concomitant]
  12. MOLAXOLE [Concomitant]

REACTIONS (6)
  - BACK PAIN [None]
  - MALAISE [None]
  - ARRHYTHMIA [None]
  - MYALGIA [None]
  - NEOPLASM PROGRESSION [None]
  - NEOPLASM MALIGNANT [None]
